FAERS Safety Report 7119772-0 (Version None)
Quarter: 2010Q4

REPORT INFORMATION
  Report Type: 
  Country: None (occurrence: None)
  Receive Date: 20101123
  Receipt Date: 20100813
  Transmission Date: 20110411
  Serious: No
  Sender: FDA-Public Use
  Company Number: US-BRISTOL-MYERS SQUIBB COMPANY-15239809

PATIENT
  Age: 75 Year
  Sex: Female

DRUGS (10)
  1. ONGLYZA [Suspect]
     Dosage: 2 TO 3 DAYS
  2. FENOFIBRATE [Concomitant]
  3. CITALOPRAM HYDROBROMIDE [Concomitant]
  4. LIDODERM [Concomitant]
  5. ZETIA [Concomitant]
  6. LISINOPRIL [Concomitant]
  7. FLUTICASONE PROPIONATE [Concomitant]
  8. ALBUTEROL [Concomitant]
  9. SPIRIVA [Concomitant]
  10. UTIRA [Concomitant]

REACTIONS (1)
  - DYSURIA [None]
